FAERS Safety Report 6182026-3 (Version None)
Quarter: 2009Q2

REPORT INFORMATION
  Report Type: 
  Country: None (occurrence: None)
  Receive Date: 20090505
  Receipt Date: 20090420
  Transmission Date: 20091009
  Serious: Yes (Hospitalization)
  Sender: FDA-Public Use
  Company Number: 2009S1006822

PATIENT
  Sex: Male
  Weight: 115 kg

DRUGS (7)
  1. CITALOPRAM HYDROBROMIDE [Suspect]
     Indication: BIPOLAR DISORDER
  2. CARBAMAZEPINE [Suspect]
     Indication: BIPOLAR DISORDER
  3. LITHIUM CARBONATE [Suspect]
     Indication: BIPOLAR DISORDER
     Dosage: 1500 MG; NULL_1_DAY;
  4. VALPROIC ACID [Concomitant]
  5. SILDENAFIL CITRATE [Concomitant]
  6. TESTOSTERONE [Concomitant]
  7. INSULIN [Concomitant]

REACTIONS (17)
  - APATHY [None]
  - BLOOD GLUCOSE INCREASED [None]
  - BRADYPHRENIA [None]
  - CHROMOSOME ANALYSIS ABNORMAL [None]
  - CONDITION AGGRAVATED [None]
  - DISTURBANCE IN ATTENTION [None]
  - ERECTILE DYSFUNCTION [None]
  - FATIGUE [None]
  - HYPOGONADISM MALE [None]
  - INSULIN-REQUIRING TYPE 2 DIABETES MELLITUS [None]
  - IRRITABILITY [None]
  - LOSS OF LIBIDO [None]
  - NEUROPATHY PERIPHERAL [None]
  - NO THERAPEUTIC RESPONSE [None]
  - OBESITY [None]
  - SELF ESTEEM DECREASED [None]
  - SOCIAL AVOIDANT BEHAVIOUR [None]
